FAERS Safety Report 12801553 (Version 1)
Quarter: 2016Q4

REPORT INFORMATION
  Report Type: Spontaneous
  Country: US (occurrence: US)
  Receive Date: 20161003
  Receipt Date: 20161003
  Transmission Date: 20170207
  Serious: No
  Sender: FDA-Public Use
  Company Number: US-TAKEDA-2016TUS017088

PATIENT
  Sex: Female

DRUGS (22)
  1. ALBUTEROL SULFATE. [Concomitant]
     Active Substance: ALBUTEROL SULFATE
     Indication: CHRONIC OBSTRUCTIVE PULMONARY DISEASE
     Dosage: UNK, QID
  2. PROTONIX                           /00661201/ [Concomitant]
     Active Substance: OMEPRAZOLE
     Indication: GASTROOESOPHAGEAL REFLUX DISEASE
     Dosage: 20 MG, QD
     Route: 065
  3. OXYCODONE WITH APAP [Concomitant]
     Active Substance: ACETAMINOPHEN\OXYCODONE HYDROCHLORIDE
     Indication: PAIN
     Dosage: 5/325, Q6HR
     Route: 065
  4. XANAX [Concomitant]
     Active Substance: ALPRAZOLAM
     Indication: SLEEP DISORDER
     Dosage: 0.5 MG, UNK
     Route: 065
  5. SERAX                              /00040901/ [Concomitant]
     Indication: ANXIETY
     Dosage: 10 MG, BID
     Route: 065
  6. HYOSCYAMINE. [Concomitant]
     Active Substance: HYOSCYAMINE
     Indication: HIATUS HERNIA
     Dosage: 0.125 MG, UNK
     Route: 065
  7. OCUVITE [Concomitant]
     Active Substance: VITAMINS
     Indication: EYE DISORDER
     Dosage: UNK, QD
     Route: 065
  8. BUDESONIDE. [Concomitant]
     Active Substance: BUDESONIDE
     Indication: LUNG DISORDER
     Dosage: 0.5 MG/ML, BID
     Route: 065
  9. AMLODIPINE BESYLATE. [Concomitant]
     Active Substance: AMLODIPINE BESYLATE
     Indication: BLOOD PRESSURE MEASUREMENT
     Dosage: 10 MG, QD
     Route: 065
  10. PAMELOR [Concomitant]
     Active Substance: NORTRIPTYLINE HYDROCHLORIDE
     Indication: DEPRESSION
     Dosage: 25 MG, UNK
     Route: 065
  11. RESTASIS [Concomitant]
     Active Substance: CYCLOSPORINE
     Dosage: UNK, BID
     Route: 050
  12. OMEPRAZOLE. [Concomitant]
     Active Substance: OMEPRAZOLE
     Indication: GASTROOESOPHAGEAL REFLUX DISEASE
     Dosage: 20 MG, QD
     Route: 065
  13. LEVOTHYROXINE. [Concomitant]
     Active Substance: LEVOTHYROXINE
     Indication: THYROID DISORDER
     Dosage: 112 ?G, QD
     Route: 065
  14. AMBIEN [Concomitant]
     Active Substance: ZOLPIDEM TARTRATE
     Indication: SLEEP DISORDER
     Dosage: 10 MG, UNK
     Route: 065
  15. VITAMIN D3 [Concomitant]
     Active Substance: CHOLECALCIFEROL
     Dosage: 2000 UNITS, QD
     Route: 065
  16. LASIX [Concomitant]
     Active Substance: FUROSEMIDE
     Indication: OEDEMA PERIPHERAL
     Dosage: UNK
     Route: 065
  17. ENALAPRIL [Concomitant]
     Active Substance: ENALAPRIL
     Indication: BLOOD PRESSURE MEASUREMENT
     Dosage: 10 MG, QD
     Route: 065
  18. CYCLOBENZAPRINE [Concomitant]
     Active Substance: CYCLOBENZAPRINE
     Dosage: 10 MG, TID
     Route: 065
  19. LYRICA [Concomitant]
     Active Substance: PREGABALIN
     Dosage: 100 MG, BID
     Route: 048
  20. PREVACID [Suspect]
     Active Substance: LANSOPRAZOLE
     Indication: PRODUCT USED FOR UNKNOWN INDICATION
     Dosage: UNK
     Route: 065
  21. ASPIRIN                            /00002701/ [Concomitant]
     Active Substance: ASPIRIN
     Indication: COAGULOPATHY
     Dosage: 81 MG, QD
     Route: 065
  22. PLAVIX [Concomitant]
     Active Substance: CLOPIDOGREL BISULFATE
     Dosage: 75 MG, QD
     Route: 065

REACTIONS (2)
  - Diarrhoea [Unknown]
  - Nausea [Unknown]

NARRATIVE: CASE EVENT DATE: 2015
